FAERS Safety Report 12369426 (Version 1)
Quarter: 2016Q2

REPORT INFORMATION
  Report Type: Spontaneous
  Country: US (occurrence: None)
  Receive Date: 20160513
  Receipt Date: 20160513
  Transmission Date: 20160815
  Serious: No
  Sender: FDA-Public Use
  Company Number: None

PATIENT
  Age: 27 Year
  Sex: Female
  Weight: 81.65 kg

DRUGS (3)
  1. GARDEN OF LIFE MULTIVITAMIN [Concomitant]
  2. TOPIRAMATE, 25 MG [Suspect]
     Active Substance: TOPIRAMATE
     Indication: MIGRAINE
     Route: 048
     Dates: start: 20160325, end: 20160510
  3. PARAGARD T 380A [Concomitant]
     Active Substance: COPPER

REACTIONS (15)
  - Ageusia [None]
  - Migraine [None]
  - Apathy [None]
  - Feeling abnormal [None]
  - Suicidal ideation [None]
  - Fatigue [None]
  - Impaired driving ability [None]
  - Speech disorder [None]
  - Menorrhagia [None]
  - Abdominal pain upper [None]
  - Metrorrhagia [None]
  - Paraesthesia [None]
  - Thinking abnormal [None]
  - Disturbance in attention [None]
  - Mental disorder [None]

NARRATIVE: CASE EVENT DATE: 20160425
